FAERS Safety Report 6691882-1 (Version None)
Quarter: 2010Q2

REPORT INFORMATION
  Report Type: 
  Country: None (occurrence: None)
  Receive Date: 20100422
  Receipt Date: 20090615
  Transmission Date: 20101027
  Serious: Yes (Hospitalization)
  Sender: FDA-Public Use
  Company Number: US-ASTRAZENECA-2009UW15268

PATIENT
  Age: 81 Year
  Sex: Female

DRUGS (1)
  1. TOPROL-XL [Suspect]
     Route: 048
     Dates: start: 20020101

REACTIONS (5)
  - ATRIAL FIBRILLATION [None]
  - NIGHTMARE [None]
  - PERIPHERAL COLDNESS [None]
  - POOR QUALITY SLEEP [None]
  - TINNITUS [None]
